FAERS Safety Report 4571103-6 (Version None)
Quarter: 2005Q1

REPORT INFORMATION
  Report Type: 
  Country: None (occurrence: None)
  Receive Date: 20050202
  Receipt Date: 20050126
  Transmission Date: 20050727
  Serious: Yes (Hospitalization, Other)
  Sender: FDA-Public Use
  Company Number: 2005-01-1781

PATIENT
  Age: 68 Year
  Sex: Male

DRUGS (1)
  1. CLARITIN [Suspect]
     Dosage: ORAL
     Route: 048
     Dates: start: 20030701

REACTIONS (1)
  - ARRHYTHMIA [None]
